FAERS Safety Report 9438169 (Version 1)
Quarter: 2013Q3

REPORT INFORMATION
  Report Type: Spontaneous
  Country: US (occurrence: US)
  Receive Date: 20130802
  Receipt Date: 20130802
  Transmission Date: 20140515
  Serious: Yes (Hospitalization, Other)
  Sender: FDA-Public Use
  Company Number: US-BRISTOL-MYERS SQUIBB COMPANY-17347808

PATIENT
  Age: 82 Year
  Sex: Female

DRUGS (2)
  1. COUMADINE [Suspect]
     Dates: start: 20121102
  2. LETAIRIS [Suspect]
     Dosage: TABS
     Route: 048
     Dates: start: 20121102

REACTIONS (4)
  - Hypoxia [Unknown]
  - Red blood cell count decreased [Unknown]
  - International normalised ratio increased [Unknown]
  - Gastrointestinal haemorrhage [Unknown]
